FAERS Safety Report 20922789 (Version 1)
Quarter: 2022Q2

REPORT INFORMATION
  Report Type: Spontaneous
  Country: PL (occurrence: PL)
  Receive Date: 20220607
  Receipt Date: 20220607
  Transmission Date: 20220720
  Serious: Yes (Other)
  Sender: FDA-Public Use
  Company Number: PL-BAYER-2022A039603

PATIENT
  Age: 71 Year
  Sex: Female

DRUGS (2)
  1. EYLEA [Suspect]
     Active Substance: AFLIBERCEPT
     Indication: Neovascular age-related macular degeneration
     Dosage: TOTAL DOSE NOT REPORTED, LAST DOSE PRIOR THE EVENT WAS RECEIVED ON 04-JAN-2022
     Dates: start: 20171214, end: 20220126
  2. EYLEA [Suspect]
     Active Substance: AFLIBERCEPT
     Dosage: LAST INJECTION PRIOR TO THE EVENT, SOLUTION FOR INJECTION, STRENGTH: 40 MG/ML
     Route: 031
     Dates: start: 20220104, end: 20220104

REACTIONS (2)
  - Blindness unilateral [Not Recovered/Not Resolved]
  - Retinal artery embolism [Not Recovered/Not Resolved]

NARRATIVE: CASE EVENT DATE: 20220124
